FAERS Safety Report 6352097-X (Version None)
Quarter: 2009Q3

REPORT INFORMATION
  Report Type: 
  Country: None (occurrence: None)
  Receive Date: 20090912
  Receipt Date: 20090622
  Transmission Date: 20100115
  Serious: No
  Sender: FDA-Public Use
  Company Number: US-ABBOTT-07P-163-0431081-00

PATIENT
  Sex: Female
  Weight: 68.1 kg

DRUGS (25)
  1. HUMIRA [Suspect]
     Indication: PSORIATIC ARTHROPATHY
     Route: 058
     Dates: start: 20070819
  2. INSULIN [Concomitant]
     Indication: TYPE 1 DIABETES MELLITUS
     Route: 058
  3. METFORMIN HCL [Concomitant]
     Indication: DIABETES MELLITUS
     Dosage: 2000 MG DAILY BEFORE DINNER
     Route: 048
     Dates: start: 20030101
  4. GLIMEPIRIDE [Concomitant]
     Indication: DIABETES MELLITUS
     Dosage: 4 MG DAILY BEFORE DINNER
     Route: 048
     Dates: start: 20070901
  5. LEVOTHYROXINE SODIUM [Concomitant]
     Indication: HYPOTHYROIDISM
     Route: 048
  6. ATORVASTATIN CALCIUM [Concomitant]
     Indication: BLOOD CHOLESTEROL
     Route: 048
  7. FENOFIBRATE [Concomitant]
     Indication: BLOOD CHOLESTEROL
     Route: 048
     Dates: start: 20020101
  8. EZETIMIBE [Concomitant]
     Indication: BLOOD CHOLESTEROL
     Route: 048
     Dates: start: 20020101
  9. ESOMEPRAZOLE MAGNESIUM [Concomitant]
     Indication: GASTROOESOPHAGEAL REFLUX DISEASE
     Route: 048
     Dates: start: 20080407
  10. ASPIRIN [Concomitant]
     Indication: CARDIOVASCULAR DISORDER
     Route: 048
  11. ASPIRIN [Concomitant]
     Indication: PROPHYLAXIS
  12. RAMIPRIL [Concomitant]
     Indication: DIABETES MELLITUS
     Route: 048
     Dates: start: 20030101
  13. RAMIPRIL [Concomitant]
     Indication: PROPHYLAXIS
  14. FLOUCALCIC [Concomitant]
     Indication: BONE DISORDER
     Route: 048
     Dates: start: 19800101
  15. CALCIUM D [Concomitant]
     Indication: OSTEOPOROSIS
     Dosage: DAILY
     Route: 048
  16. CALCIUM D [Concomitant]
     Indication: BONE DISORDER
  17. SOLIFENACIN [Concomitant]
     Indication: POLLAKIURIA
     Route: 048
     Dates: start: 20080201
  18. VITAMIN C AND E [Concomitant]
     Indication: VITAMIN SUPPLEMENTATION
     Route: 048
  19. FOLIC ACID [Concomitant]
     Indication: IMMUNE SYSTEM DISORDER
     Route: 048
     Dates: start: 20070101
  20. ALENDRONATE SODIUM [Concomitant]
     Indication: OSTEOPOROSIS
     Route: 048
  21. BYETTA [Concomitant]
     Indication: DIABETES MELLITUS
     Route: 050
     Dates: start: 20060101
  22. LEVOTHROXINE-MYL [Concomitant]
     Indication: THYROID DISORDER
     Route: 048
     Dates: start: 20020101
  23. LEVOTHROXINE-MYL [Concomitant]
     Indication: PROPHYLAXIS
  24. IBANDRONATE SODIUM [Concomitant]
     Indication: BONE DISORDER
     Route: 048
     Dates: start: 20080201
  25. METHOTREXATE SODIUM [Concomitant]
     Indication: PSORIATIC ARTHROPATHY
     Route: 048
     Dates: start: 20070101

REACTIONS (11)
  - ANAEMIA [None]
  - ARTHRALGIA [None]
  - GASTROOESOPHAGEAL REFLUX DISEASE [None]
  - INCORRECT DOSE ADMINISTERED [None]
  - INJECTION SITE ERYTHEMA [None]
  - INJECTION SITE IRRITATION [None]
  - INJECTION SITE PAIN [None]
  - OEDEMA PERIPHERAL [None]
  - PAIN IN EXTREMITY [None]
  - RASH PAPULAR [None]
  - WRONG TECHNIQUE IN DRUG USAGE PROCESS [None]
